FAERS Safety Report 9670462 (Version 2)
Quarter: 2013Q4

REPORT INFORMATION
  Report Type: Spontaneous
  Country: JP (occurrence: JP)
  Receive Date: 20131106
  Receipt Date: 20131128
  Transmission Date: 20140711
  Serious: Yes (Death, Other)
  Sender: FDA-Public Use
  Company Number: JP-ROCHE-1295484

PATIENT
  Age: 48 Year
  Sex: Female

DRUGS (10)
  1. XELODA [Suspect]
     Indication: RECTAL CANCER
     Dosage: DOSAGE IS UNCERTAIN.
     Route: 048
  2. AVASTIN [Suspect]
     Indication: RECTAL CANCER
     Dosage: DOSAGE IS UNCERTAIN.
     Route: 041
  3. IRINOTECAN HYDROCHLORIDE [Concomitant]
     Indication: RECTAL CANCER
     Dosage: DOSAGE IS UNCERTAIN.
     Route: 041
  4. 5-FU [Concomitant]
     Indication: RECTAL CANCER
     Dosage: DOSAGE IS UNCERTAIN.
     Route: 041
  5. 5-FU [Concomitant]
     Indication: RECTAL CANCER
     Dosage: DOSAGE IS UNCERTAIN.
     Route: 040
  6. 5-FU [Concomitant]
     Indication: RECTAL CANCER
     Dosage: DOSAGE IS UNCERTAIN.
     Route: 041
  7. 5-FU [Concomitant]
     Indication: RECTAL CANCER
     Dosage: DOSAGE IS UNCERTAIN.
     Route: 040
  8. CALCIUM LEVOFOLINATE [Concomitant]
     Indication: RECTAL CANCER
     Dosage: DOSAGE IS UNCERTAIN.
     Route: 041
  9. CALCIUM LEVOFOLINATE [Concomitant]
     Indication: RECTAL CANCER
     Dosage: DOSAGE IS UNCERTAIN.
     Route: 041
  10. ELPLAT [Concomitant]
     Indication: RECTAL CANCER
     Dosage: DOSAGE IS UNCERTAIN.
     Route: 041

REACTIONS (2)
  - Hydronephrosis [Unknown]
  - Rectal cancer [Fatal]
